FAERS Safety Report 8294532 (Version 7)
Quarter: 2013Q4

REPORT INFORMATION
  Report Type: Report from Study
  Country: BR (occurrence: BR)
  Receive Date: 20111216
  Receipt Date: 20131210
  Transmission Date: 20140711
  Serious: Yes (Hospitalization, Other)
  Sender: FDA-Public Use
  Company Number: PHHY2011BR87077

PATIENT
  Age: 64 Year
  Sex: Female
  Weight: 75 kg

DRUGS (13)
  1. XOLAIR [Suspect]
     Indication: ASTHMA
     Dosage: 300 MG, BIW (EACH 15 DAYS)
     Dates: start: 20100101
  2. XOLAIR [Suspect]
     Dosage: UNK
     Dates: start: 20110915
  3. XOLAIR [Suspect]
     Dosage: UNK
     Dates: start: 201204
  4. FORASEQ [Suspect]
     Indication: ASTHMA
     Dosage: UNK, 8 YEARS AGO
  5. FLUIMICIL [Concomitant]
     Dosage: UNK
  6. SPIRIVA [Concomitant]
     Dosage: UNK, 5 YEARS AGO
  7. BAMIFIX [Concomitant]
     Dosage: UNK
  8. VYTORIN [Concomitant]
     Dosage: UNK
  9. BUDESONIDE [Concomitant]
  10. OMEPRAZOL [Concomitant]
     Dosage: UNK, A WHILE AGO
  11. LOSARTAN [Concomitant]
     Dosage: UNK, A WHILE AGO
  12. PERIDONE [Concomitant]
     Dosage: UNK, SAME TIME
  13. PERIDAL [Concomitant]
     Dosage: UNK

REACTIONS (14)
  - Chronic obstructive pulmonary disease [Recovering/Resolving]
  - Chest pain [Not Recovered/Not Resolved]
  - Asthma [Recovering/Resolving]
  - Wheezing [Recovering/Resolving]
  - Swelling [Recovering/Resolving]
  - Dyspnoea [Recovering/Resolving]
  - Fatigue [Recovering/Resolving]
  - Catheter site related reaction [Unknown]
  - Respiratory tract infection [Unknown]
  - Weight increased [Unknown]
  - Abdominal distension [Unknown]
  - Malaise [Unknown]
  - Discomfort [Recovering/Resolving]
  - Anxiety [Recovering/Resolving]
